FAERS Safety Report 20064164 (Version 1)
Quarter: 2021Q4

REPORT INFORMATION
  Report Type: Spontaneous
  Country: US (occurrence: None)
  Receive Date: 20211111
  Receipt Date: 20211111
  Transmission Date: 20220303
  Serious: Yes (Hospitalization)
  Sender: FDA-Public Use
  Company Number: None

PATIENT
  Age: 53 Year
  Sex: Female

DRUGS (1)
  1. OPSUMIT [Suspect]
     Active Substance: MACITENTAN
     Indication: Pulmonary arterial hypertension
     Dosage: FREQUENCY : DAILY;?
     Route: 048
     Dates: start: 20170113

REACTIONS (9)
  - Hypotension [None]
  - Asthenia [None]
  - Hypoxia [None]
  - Treatment noncompliance [None]
  - Systemic lupus erythematosus [None]
  - Condition aggravated [None]
  - Haemodialysis [None]
  - C-reactive protein increased [None]
  - Hypovolaemia [None]

NARRATIVE: CASE EVENT DATE: 20211015
